FAERS Safety Report 9379510 (Version 1)
Quarter: 2013Q3

REPORT INFORMATION
  Report Type: Spontaneous
  Country: US (occurrence: US)
  Receive Date: 20130702
  Receipt Date: 20130702
  Transmission Date: 20140515
  Serious: Yes (Other)
  Sender: FDA-Public Use
  Company Number: PHEH2013US013812

PATIENT
  Age: 55 Year
  Sex: Female

DRUGS (17)
  1. ZOMETA [Suspect]
     Indication: BREAST CANCER
     Dosage: UNK UKN, UNK
  2. ZOMETA [Suspect]
     Indication: METASTASES TO BONE
  3. ANASTROZOLE [Concomitant]
     Dosage: 1 MG, QD
  4. VITAMIN D3 [Concomitant]
     Dosage: UNK UKN, QD
  5. CALCIUM [Concomitant]
     Dosage: UNK UKN, UNK
  6. NEXIUM 1-2-3 [Concomitant]
     Dosage: 40 MG, QD
  7. CELEBREX [Concomitant]
     Dosage: 200 MG, QD
  8. LEVOTHYROXINE [Concomitant]
     Dosage: 150 UG, QD
  9. FLUOXETINE [Concomitant]
     Dosage: 40 MG, QD
  10. LIOTHYRONINE SODIUM [Concomitant]
     Dosage: 25 UG, QD
  11. MAGNESIUM [Concomitant]
     Dosage: 500 MG, QD
  12. COENZIMA Q-10 [Concomitant]
     Dosage: 100 MG, QD
  13. ACIDOPHILUS [Concomitant]
     Dosage: UNK UKN, QD
  14. MILK THISTLE [Concomitant]
     Dosage: 600 MG, UNK
  15. FLAX SEED OIL [Concomitant]
     Dosage: 1400 MG, QD
  16. FISH OIL [Concomitant]
     Indication: BREAST CANCER
     Dosage: 1000 MG, QD
  17. FISH OIL [Concomitant]
     Indication: METASTASES TO BONE

REACTIONS (3)
  - Osteonecrosis of jaw [Unknown]
  - Bone disorder [Unknown]
  - Pain in jaw [Unknown]
